FAERS Safety Report 6669430-1 (Version None)
Quarter: 2010Q2

REPORT INFORMATION
  Report Type: 
  Country: None (occurrence: None)
  Receive Date: 20100406
  Receipt Date: 20100301
  Transmission Date: 20101027
  Serious: Yes (Other)
  Sender: FDA-Public Use
  Company Number: PHEH2010US02144

PATIENT
  Sex: Female

DRUGS (16)
  1. RECLAST [Suspect]
     Dosage: UNK
     Dates: start: 20091101
  2. BELLADONNA AND DERIVATIVES [Concomitant]
  3. BACLOFEN [Concomitant]
  4. CELEBREX [Concomitant]
  5. OMEPRAZOLE [Concomitant]
  6. TRAMADOL [Concomitant]
  7. FUROSEMIDE [Concomitant]
  8. CRESTOR [Concomitant]
  9. ENABLEX [Concomitant]
  10. KLOR-CON [Concomitant]
  11. TYLENOL-500 [Concomitant]
  12. PREDNISONE TAB [Concomitant]
  13. LIDOCAINE [Concomitant]
  14. ABSORBINE JR [Concomitant]
  15. AVONEX [Concomitant]
  16. ACTONEL [Concomitant]

REACTIONS (13)
  - ABDOMINAL DISCOMFORT [None]
  - ARTHRITIS [None]
  - BONE PAIN [None]
  - CYSTITIS [None]
  - HEADACHE [None]
  - HYPERHIDROSIS [None]
  - MULTIPLE SCLEROSIS [None]
  - MUSCLE SPASMS [None]
  - NASOPHARYNGITIS [None]
  - NAUSEA [None]
  - PAIN [None]
  - TINEA PEDIS [None]
  - TOOTHACHE [None]
